FAERS Safety Report 26051327 (Version 2)
Quarter: 2025Q4

REPORT INFORMATION
  Report Type: Spontaneous
  Country: US (occurrence: US)
  Receive Date: 20251117
  Receipt Date: 20251230
  Transmission Date: 20260118
  Serious: No
  Sender: TOLMAR
  Company Number: US-Tolmar-TLM-2025-08416

PATIENT

DRUGS (3)
  1. ELIGARD [Suspect]
     Active Substance: LEUPROLIDE ACETATE
     Indication: Product used for unknown indication
     Dosage: LOT NUMBER/EXPIRATION DATE:?BOX: 15405CUS/ 8-2026?SYRINGE A: 15405AUS/ 8-2026?SYRINGE B: 15405BUS/ 8
     Dates: start: 20251106
  2. ELIGARD [Suspect]
     Active Substance: LEUPROLIDE ACETATE
     Dosage: REPLACEMENT DOSE
  3. DEVICE [Suspect]
     Active Substance: DEVICE
     Indication: Product used for unknown indication
     Dosage: LOT NUMBER/EXPIRATION DATE:?BOX: 15405CUS/ 8-2026?SYRINGE A: 15405AUS/ 8-2026?SYRINGE B: 15405BUS/ 8

REACTIONS (4)
  - Wrong technique in product usage process [Unknown]
  - Intercepted product preparation error [Unknown]
  - Product packaging quantity issue [Unknown]
  - Product quality issue [Unknown]

NARRATIVE: CASE EVENT DATE: 20251106
